FAERS Safety Report 9404593 (Version 2)
Quarter: 2013Q3

REPORT INFORMATION
  Report Type: Spontaneous
  Country: US (occurrence: US)
  Receive Date: 20130717
  Receipt Date: 20130826
  Transmission Date: 20140515
  Serious: No
  Sender: FDA-Public Use
  Company Number: US-PFIZER INC-2013206537

PATIENT
  Age: 64 Year
  Sex: Female
  Weight: 61.2 kg

DRUGS (3)
  1. LEVOTHYROXINE SODIUM [Suspect]
     Dosage: UNK
  2. SYNTHROID [Suspect]
     Indication: HYPOTHYROIDISM
     Dosage: UNK
     Dates: start: 2013, end: 2013
  3. TIROSINT [Suspect]
     Indication: HYPOTHYROIDISM
     Dosage: 75 UG, DAILY
     Dates: start: 2013

REACTIONS (6)
  - Heart rate abnormal [Not Recovered/Not Resolved]
  - Alopecia [Not Recovered/Not Resolved]
  - Arthralgia [Not Recovered/Not Resolved]
  - Gastric disorder [Not Recovered/Not Resolved]
  - Oesophageal pain [Not Recovered/Not Resolved]
  - Drug intolerance [Not Recovered/Not Resolved]
